FAERS Safety Report 4423989-3 (Version None)
Quarter: 2004Q3

REPORT INFORMATION
  Report Type: 
  Country: None (occurrence: None)
  Receive Date: 20040805
  Receipt Date: 20040727
  Transmission Date: 20050211
  Serious: Yes (Hospitalization, Other)
  Sender: FDA-Public Use
  Company Number: 2004051600

PATIENT
  Age: 43 Year
  Sex: Female

DRUGS (2)
  1. ATORVASTATIN (ATORVASTATIN) [Suspect]
     Indication: TYPE IIA HYPERLIPIDAEMIA
     Dosage: 20 MG (1 IN 1 D), ORAL
     Route: 048
     Dates: start: 20040101, end: 20040101
  2. OTHER ANTIHYPERTENSIVES (OTHER ANTIHYPERTENSIVES) [Concomitant]

REACTIONS (3)
  - ISCHAEMIA [None]
  - PARAESTHESIA [None]
  - SENSATION OF HEAVINESS [None]
